FAERS Safety Report 20028137 (Version 1)
Quarter: 2021Q4

REPORT INFORMATION
  Report Type: Spontaneous
  Country: PL (occurrence: PL)
  Receive Date: 20211103
  Receipt Date: 20211103
  Transmission Date: 20220304
  Serious: Yes (Other)
  Sender: FDA-Public Use
  Company Number: PL-CELLTRION INC.-2021PL013901

PATIENT

DRUGS (14)
  1. INFLIXIMAB [Suspect]
     Active Substance: INFLIXIMAB
     Indication: Pustular psoriasis
     Dosage: 5 MG/KG (HAS RECEIVED SO FAR NINE INFUSION)
     Route: 042
  2. INFLIXIMAB [Suspect]
     Active Substance: INFLIXIMAB
     Dosage: 5 MG/KG PER WEEK
     Route: 017
  3. INFLIXIMAB [Suspect]
     Active Substance: INFLIXIMAB
     Dosage: FIRST DOSE INITIATED WITH CONCURRENT TAPERING DOWN OF ACITRETIN
     Route: 042
  4. INFLIXIMAB [Suspect]
     Active Substance: INFLIXIMAB
     Dosage: SECOND DOSE 2 WEEKS LATER STANDARD DOSING SCHEDULE
     Route: 042
  5. ACITRETIN [Suspect]
     Active Substance: ACITRETIN
     Indication: Pustular psoriasis
     Dosage: 20 MG, DAILY
  6. ACITRETIN [Suspect]
     Active Substance: ACITRETIN
     Dosage: 0.8 MG/KG
  7. ACITRETIN [Suspect]
     Active Substance: ACITRETIN
     Dosage: 20 MG, DAILY (0.3 MG/KG)
  8. ACITRETIN [Suspect]
     Active Substance: ACITRETIN
     Dosage: 50 MG, DAILY (0.8 MG/KG)
  9. ACITRETIN [Suspect]
     Active Substance: ACITRETIN
     Dosage: ADDITIONAL INFORMATION ON DRUG: LACK OF EFFICACY AT LOWER DOSES IN MONOTHERAPY
  10. ACITRETIN [Suspect]
     Active Substance: ACITRETIN
     Dosage: INITIALLY AT 0.8 MG/KG AND GRADUALLY TAPERED DOWN
  11. ACITRETIN [Suspect]
     Active Substance: ACITRETIN
     Dosage: REINTRODUCED (0.8 MG/KG)
  12. METHOTREXATE [Suspect]
     Active Substance: METHOTREXATE
     Indication: Pustular psoriasis
     Dosage: 15 MG, 1/WEEK
     Route: 048
  13. CYCLOSPORINE [Suspect]
     Active Substance: CYCLOSPORINE
     Indication: Pustular psoriasis
     Dosage: 300-400 MG/DAY
  14. METHYLPREDNISOLONE [Suspect]
     Active Substance: METHYLPREDNISOLONE
     Indication: Pustular psoriasis
     Dosage: ADDITIONAL INFORMATION ON DRUG: LACK OF EFFICACY
     Route: 048

REACTIONS (8)
  - Herpes zoster [Recovered/Resolved]
  - Sensitive skin [Unknown]
  - Alopecia [Unknown]
  - Epistaxis [Unknown]
  - Upper respiratory tract infection [Unknown]
  - Drug ineffective [Unknown]
  - Incorrect route of product administration [Unknown]
  - No adverse event [Unknown]
